FAERS Safety Report 24125941 (Version 1)
Quarter: 2024Q3

REPORT INFORMATION
  Report Type: Spontaneous
  Country: US (occurrence: US)
  Receive Date: 20240723
  Receipt Date: 20240723
  Transmission Date: 20241016
  Serious: Yes (Other)
  Sender: TEVA
  Company Number: US-TEVA-VS-3221382

PATIENT
  Age: 28 Year
  Sex: Male

DRUGS (1)
  1. GALZIN [Suspect]
     Active Substance: ZINC ACETATE
     Indication: Hepato-lenticular degeneration
     Dosage: TIME INTERVAL: 0.33333333 DAYS: ON AN EMPTY STOMACH
     Route: 065

REACTIONS (4)
  - Coeliac disease [Unknown]
  - Epigastric discomfort [Recovered/Resolved]
  - Ulcer [Recovered/Resolved]
  - Eructation [Not Recovered/Not Resolved]
